FAERS Safety Report 5393280-X (Version None)
Quarter: 2007Q3

REPORT INFORMATION
  Report Type: 
  Country: None (occurrence: None)
  Receive Date: 20070723
  Receipt Date: 20070712
  Transmission Date: 20080115
  Serious: Yes (Other)
  Sender: FDA-Public Use
  Company Number: PHNR2007AU01368

PATIENT
  Sex: Male

DRUGS (1)
  1. FAMVIR [Suspect]
     Indication: HERPES ZOSTER
     Dosage: 250 MG, TID
     Dates: start: 20060601, end: 20060101

REACTIONS (5)
  - AGEUSIA [None]
  - BALANCE DISORDER [None]
  - EYELID DISORDER [None]
  - HYPOAESTHESIA ORAL [None]
  - NERVOUS SYSTEM DISORDER [None]
